FAERS Safety Report 9937177 (Version 2)
Quarter: 2014Q1

REPORT INFORMATION
  Report Type: Spontaneous
  Country: US (occurrence: US)
  Receive Date: 20140301
  Receipt Date: 20140314
  Transmission Date: 20141002
  Serious: No
  Sender: FDA-Public Use
  Company Number: US-ASTRAZENECA-2014SE11853

PATIENT
  Sex: Male

DRUGS (1)
  1. SYNAGIS [Suspect]
     Dosage: FURST DOSE
     Route: 030
     Dates: start: 20140208, end: 20140208

REACTIONS (1)
  - Body temperature decreased [Unknown]
